FAERS Safety Report 11239735 (Version 1)
Quarter: 2015Q3

REPORT INFORMATION
  Report Type: Spontaneous
  Country: US (occurrence: None)
  Receive Date: 20150701
  Receipt Date: 20150701
  Transmission Date: 20151125
  Serious: No
  Sender: FDA-Public Use
  Company Number: None

PATIENT

DRUGS (1)
  1. EPINEPHRINE. [Suspect]
     Active Substance: EPINEPHRINE
     Dosage: ABBOJECT GLASS SYRINGE (18 G X 3 1/2^) 10 ML
     Route: 016

REACTIONS (2)
  - Physical product label issue [None]
  - Product label issue [None]
